FAERS Safety Report 9732636 (Version 7)
Quarter: 2015Q4

REPORT INFORMATION
  Report Type: Report from Study
  Country: US (occurrence: US)
  Receive Date: 20131205
  Receipt Date: 20151006
  Transmission Date: 20160305
  Serious: Yes (Other)
  Sender: FDA-Public Use
  Company Number: US-SA-2013SA123133

PATIENT
  Age: 67 Year
  Sex: Female
  Weight: 65.7 kg

DRUGS (9)
  1. AUBAGIO [Suspect]
     Active Substance: TERIFLUNOMIDE
     Indication: MULTIPLE SCLEROSIS
     Route: 048
     Dates: start: 20131002, end: 20131222
  2. CLARITIN-D 12 HOUR [Concomitant]
     Active Substance: LORATADINE\PSEUDOEPHEDRINE SULFATE
  3. LEVOTHYROXINE. [Concomitant]
     Active Substance: LEVOTHYROXINE
     Indication: THYROID DISORDER
  4. AUBAGIO [Suspect]
     Active Substance: TERIFLUNOMIDE
     Indication: MULTIPLE SCLEROSIS
     Route: 048
     Dates: start: 2015
  5. AUBAGIO [Suspect]
     Active Substance: TERIFLUNOMIDE
     Indication: MULTIPLE SCLEROSIS
     Route: 048
     Dates: start: 20130102
  6. BACLOFEN. [Concomitant]
     Active Substance: BACLOFEN
     Indication: RESTLESS LEGS SYNDROME
  7. AUBAGIO [Suspect]
     Active Substance: TERIFLUNOMIDE
     Indication: MULTIPLE SCLEROSIS
     Route: 048
     Dates: end: 20140201
  8. AMANTADINE [Concomitant]
     Active Substance: AMANTADINE
  9. OXYBUTYNIN [Concomitant]
     Active Substance: OXYBUTYNIN
     Indication: INCONTINENCE

REACTIONS (11)
  - Chest pain [Unknown]
  - Influenza [Recovering/Resolving]
  - Pollakiuria [Unknown]
  - Drug ineffective [Unknown]
  - Kidney infection [Unknown]
  - Diarrhoea [Recovered/Resolved]
  - Hypersensitivity [Recovering/Resolving]
  - Drug dose omission [Unknown]
  - Malaise [Unknown]
  - Rhinorrhoea [Recovering/Resolving]
  - Skin cancer [Unknown]

NARRATIVE: CASE EVENT DATE: 20131029
